FAERS Safety Report 4336411-2 (Version None)
Quarter: 2004Q2

REPORT INFORMATION
  Report Type: 
  Country: None (occurrence: None)
  Receive Date: 20040407
  Receipt Date: 20040322
  Transmission Date: 20050107
  Serious: Yes (Hospitalization)
  Sender: FDA-Public Use
  Company Number: A03200400923

PATIENT
  Sex: Male

DRUGS (1)
  1. ALFUZIN [Suspect]
     Dosage: ORAL
     Route: 048

REACTIONS (3)
  - FALL [None]
  - SUBDURAL HAEMATOMA [None]
  - SYNCOPE [None]
